FAERS Safety Report 4907811-4 (Version None)
Quarter: 2006Q1

REPORT INFORMATION
  Report Type: 
  Country: None (occurrence: None)
  Receive Date: 20060210
  Receipt Date: 20050914
  Transmission Date: 20060701
  Serious: Yes (Death, Other)
  Sender: FDA-Public Use
  Company Number: PHEH2005US10522

PATIENT
  Age: 62 Year
  Sex: Male
  Weight: 113.38 kg

DRUGS (7)
  1. CLOZARIL [Suspect]
     Indication: SCHIZOPHRENIA
     Dosage: 100MG Q12PM, 250MG QHS
     Route: 048
     Dates: start: 19980327
  2. ALBUTEROL [Concomitant]
     Indication: CHRONIC OBSTRUCTIVE PULMONARY DISEASE
     Dosage: 2 PUFFS, Q8H
  3. VERAPAMIL [Concomitant]
     Indication: HYPERTENSION
     Dosage: 180 MG, QD
     Dates: start: 20050308
  4. LANSOPRAZOLE [Concomitant]
     Indication: GASTROOESOPHAGEAL REFLUX DISEASE
     Dosage: 30 MG, BID
     Route: 048
     Dates: start: 20040322
  5. FUROSEMIDE [Concomitant]
     Indication: CARDIAC FAILURE CONGESTIVE
     Dosage: 40 MG, QD
     Route: 048
     Dates: start: 20040917
  6. RISPERIDONE [Concomitant]
     Indication: SCHIZOPHRENIA
     Dosage: 1 MG, QD
     Route: 048
     Dates: start: 20040827
  7. VALPROIC ACID [Concomitant]
     Indication: SCHIZOPHRENIA
     Dosage: 500 MG, TID
     Route: 048
     Dates: start: 20041009

REACTIONS (12)
  - ACCIDENTAL OVERDOSE [None]
  - ARTERIOSCLEROSIS [None]
  - ARTERIOSCLEROSIS CORONARY ARTERY [None]
  - CARDIAC FAILURE CONGESTIVE [None]
  - CARDIOMEGALY [None]
  - CIRCULATORY COLLAPSE [None]
  - DRUG TOXICITY [None]
  - EMPHYSEMA [None]
  - MYOCARDIAL FIBROSIS [None]
  - MYOCARDIAL INFARCTION [None]
  - PULMONARY OEDEMA [None]
  - SPLENOMEGALY [None]
